FAERS Safety Report 5609610-7 (Version None)
Quarter: 2008Q1

REPORT INFORMATION
  Report Type: 
  Country: None (occurrence: None)
  Receive Date: 20080131
  Receipt Date: 20080128
  Transmission Date: 20080703
  Serious: Yes (Other)
  Sender: FDA-Public Use
  Company Number: US-BOEHRINGER INGELHEIM GMBH, GERMANY-2007-BP-24950BP

PATIENT
  Sex: Female

DRUGS (1)
  1. SPIRIVA [Suspect]
     Indication: CHRONIC OBSTRUCTIVE PULMONARY DISEASE

REACTIONS (13)
  - DRY MOUTH [None]
  - DYSPEPSIA [None]
  - DYSPHAGIA [None]
  - ERUCTATION [None]
  - GASTROOESOPHAGEAL REFLUX DISEASE [None]
  - GLAUCOMA [None]
  - LUNG NEOPLASM MALIGNANT [None]
  - OESOPHAGEAL DISORDER [None]
  - PAIN [None]
  - PHARYNGITIS [None]
  - SINUSITIS [None]
  - URINARY TRACT INFECTION [None]
  - VOMITING [None]
